FAERS Safety Report 10372801 (Version 1)
Quarter: 2014Q3

REPORT INFORMATION
  Report Type: Spontaneous
  Country: US (occurrence: US)
  Receive Date: 20140808
  Receipt Date: 20140808
  Transmission Date: 20150326
  Serious: No
  Sender: FDA-Public Use
  Company Number: US-BRISTOL-MYERS SQUIBB COMPANY-19449768

PATIENT
  Age: 61 Year
  Sex: Male
  Weight: 78 kg

DRUGS (7)
  1. SPRYCEL [Suspect]
     Active Substance: DASATINIB
     Indication: CHRONIC MYELOID LEUKAEMIA
     Route: 048
     Dates: start: 20120823
  2. GABAPENTIN. [Concomitant]
     Active Substance: GABAPENTIN
  3. CIALIS [Concomitant]
     Active Substance: TADALAFIL
  4. SYNTHROID [Concomitant]
     Active Substance: LEVOTHYROXINE SODIUM
  5. FLOMAX [Concomitant]
     Active Substance: TAMSULOSIN HYDROCHLORIDE
  6. NAPROSYN [Concomitant]
     Active Substance: NAPROXEN
  7. LUMIGAN [Concomitant]
     Active Substance: BIMATOPROST
     Dosage: SOL 0.03%

REACTIONS (1)
  - Cellulitis [Not Recovered/Not Resolved]

NARRATIVE: CASE EVENT DATE: 20130911
